FAERS Safety Report 10925600 (Version 2)
Quarter: 2015Q1

REPORT INFORMATION
  Report Type: Spontaneous
  Country: IL (occurrence: IL)
  Receive Date: 20150318
  Receipt Date: 20150324
  Transmission Date: 20150721
  Serious: Yes (Hospitalization)
  Sender: FDA-Public Use
  Company Number: IL-PFIZER INC-2014018959

PATIENT
  Age: 50 Year
  Sex: Male

DRUGS (9)
  1. TEVAPIRIN [Concomitant]
     Dosage: 100 MG, UNK
  2. SUTENT [Suspect]
     Active Substance: SUNITINIB MALATE
     Dosage: 50 MG, CYCLIC (8 DAYS, 2 DAYS REST)
     Dates: start: 2014, end: 2014
  3. SUTENT [Suspect]
     Active Substance: SUNITINIB MALATE
     Dosage: 50 MG, 1X/DAY
     Route: 048
     Dates: start: 2014
  4. SUTENT [Suspect]
     Active Substance: SUNITINIB MALATE
     Indication: METASTATIC RENAL CELL CARCINOMA
     Dosage: 50 MG, 1X/DAY, CYCLIC, CUMULATIVE DOSE WERE HARD TO ESTIMATE
     Route: 048
     Dates: start: 20140112, end: 2014
  5. LIPITOR [Concomitant]
     Active Substance: ATORVASTATIN CALCIUM
     Dosage: 40 MG, UNK
  6. SUTENT [Suspect]
     Active Substance: SUNITINIB MALATE
     Dosage: 50 MG, ONCE EVERY 3 DAYS
     Dates: end: 20150217
  7. VITAMIN B12 [Concomitant]
     Active Substance: CYANOCOBALAMIN
     Dosage: UNK
  8. NEXIUM [Concomitant]
     Active Substance: ESOMEPRAZOLE MAGNESIUM
     Dosage: UNK
  9. SUTENT [Suspect]
     Active Substance: SUNITINIB MALATE
     Dosage: 50 MG, ALTERNATE DAY (EVERY OTHER DAY CONSECUTIVE)
     Route: 048
     Dates: start: 2014, end: 2014

REACTIONS (26)
  - Malaise [Not Recovered/Not Resolved]
  - Asthenia [Not Recovered/Not Resolved]
  - Yellow skin [Recovered/Resolved]
  - Blood pressure increased [Recovered/Resolved]
  - Oral pain [Not Recovered/Not Resolved]
  - Haemoptysis [Recovered/Resolved]
  - Decreased appetite [Recovering/Resolving]
  - Oral discomfort [Recovered/Resolved]
  - Local swelling [Recovered/Resolved]
  - Dry mouth [Unknown]
  - Chest pain [Not Recovered/Not Resolved]
  - Body temperature increased [Recovered/Resolved]
  - Frequent bowel movements [Recovering/Resolving]
  - Abdominal pain upper [Not Recovered/Not Resolved]
  - Throat irritation [Unknown]
  - Oropharyngeal pain [Recovered/Resolved]
  - Disease progression [Unknown]
  - Chromaturia [Recovered/Resolved]
  - Blood creatinine increased [Unknown]
  - Weight decreased [Not Recovered/Not Resolved]
  - Pneumonia [Recovering/Resolving]
  - Abdominal pain [Recovered/Resolved]
  - Cough [Not Recovered/Not Resolved]
  - Nasopharyngitis [Recovered/Resolved]
  - Dyspnoea [Unknown]
  - Metastatic renal cell carcinoma [Unknown]

NARRATIVE: CASE EVENT DATE: 2014
